FAERS Safety Report 8284922 (Version 2)
Quarter: 2012Q4

REPORT INFORMATION
  Report Type: 
  Country: MX (occurrence: MX)
  Receive Date: 20111212
  Receipt Date: 20120910
  Transmission Date: 20130627
  Serious: Yes (Other)
  Sender: FDA-Public Use
  Company Number: PHHY2011MX106261

PATIENT
  Age: 62 Year
  Sex: Female

DRUGS (2)
  1. EXFORGE [Suspect]
     Indication: HYPERTENSION
     Dosage: 1 DF( 160/10 mg), Daily
     Dates: start: 201101
  2. GLIMETAL [Concomitant]
     Indication: DIABETES MELLITUS
     Dosage: 1 DF, daily

REACTIONS (5)
  - Fall [Not Recovered/Not Resolved]
  - Rib fracture [Recovered/Resolved]
  - Injury [Not Recovered/Not Resolved]
  - Pain in extremity [Not Recovered/Not Resolved]
  - Pain [Not Recovered/Not Resolved]
